FAERS Safety Report 7470966-4 (Version None)
Quarter: 2011Q2

REPORT INFORMATION
  Report Type: 
  Country: None (occurrence: None)
  Receive Date: 20110510
  Receipt Date: 20110509
  Transmission Date: 20111010
  Serious: Yes (Death, Hospitalization, Other)
  Sender: FDA-Public Use
  Company Number: US-B.I. PHARMACEUTICALS,INC./RIDGEFIELD-2011-BP-12620BP

PATIENT
  Age: 70 Year
  Sex: Male

DRUGS (1)
  1. PRADAXA [Suspect]
     Indication: ATRIAL FIBRILLATION
     Route: 048
     Dates: start: 20110428, end: 20110508

REACTIONS (5)
  - HAEMOPTYSIS [None]
  - MYOCARDIAL INFARCTION [None]
  - RENAL FAILURE [None]
  - BLOOD CREATININE INCREASED [None]
  - HAEMATURIA [None]
